FAERS Safety Report 23754422 (Version 1)
Quarter: 2024Q2

REPORT INFORMATION
  Report Type: Report from Study
  Country: ES (occurrence: ES)
  Receive Date: 20240418
  Receipt Date: 20240418
  Transmission Date: 20240715
  Serious: Yes (Hospitalization, Other)
  Sender: FDA-Public Use
  Company Number: ES-ROCHE-3174188

PATIENT
  Age: 75 Year
  Sex: Female

DRUGS (4)
  1. BENDAMUSTINE [Suspect]
     Active Substance: BENDAMUSTINE
     Indication: Follicular lymphoma
     Dosage: UNK (6 CYCLES)
     Route: 065
  2. BENDAMUSTINE [Suspect]
     Active Substance: BENDAMUSTINE
     Indication: Follicular lymphoma stage IV
  3. RITUXIMAB [Suspect]
     Active Substance: RITUXIMAB
     Indication: Follicular lymphoma
     Dosage: UNK, , CYCLIC (LAST DOSE 14 WEEKS BEFORE DIAGNOSIS OF ASYMPTOMATIC SARS-COV-2 INFECTION, 6 CYCLES)
     Route: 065
  4. RITUXIMAB [Suspect]
     Active Substance: RITUXIMAB
     Indication: Follicular lymphoma stage IV
     Dosage: MAINTENANCE DOSE
     Route: 065

REACTIONS (4)
  - Pneumonia viral [Recovering/Resolving]
  - COVID-19 [Recovered/Resolved]
  - Atrial fibrillation [Unknown]
  - COVID-19 pneumonia [Recovered/Resolved]
